FAERS Safety Report 14610306 (Version 2)
Quarter: 2018Q2

REPORT INFORMATION
  Report Type: Spontaneous
  Country: DE (occurrence: DE)
  Receive Date: 20180307
  Receipt Date: 20180409
  Transmission Date: 20180711
  Serious: Yes (Hospitalization, Congenital Anomaly)
  Sender: FDA-Public Use
  Company Number: DE-ABBVIE-18P-062-2270871-00

PATIENT
  Sex: Female

DRUGS (2)
  1. LAMOTRIGINE. [Suspect]
     Active Substance: LAMOTRIGINE
     Indication: MATERNAL EXPOSURE TIMING UNSPECIFIED
     Route: 064
  2. SODIUM VALPROATE [Suspect]
     Active Substance: VALPROATE SODIUM
     Indication: MATERNAL EXPOSURE TIMING UNSPECIFIED
     Route: 064

REACTIONS (17)
  - Meningomyelocele [Unknown]
  - Congenital anomaly [Unknown]
  - Talipes [Unknown]
  - Dysmorphism [Unknown]
  - Spina bifida [Unknown]
  - Microcephaly [Unknown]
  - Paralysis [Unknown]
  - Foetal anticonvulsant syndrome [Unknown]
  - Atrial septal defect [Unknown]
  - Cardiac aneurysm [Unknown]
  - Low set ears [Unknown]
  - Congenital flaccid paralysis [Unknown]
  - Cerebral ventricle dilatation [Unknown]
  - Low birth weight baby [Unknown]
  - Foetal exposure during pregnancy [Unknown]
  - Arnold-Chiari malformation [Unknown]
  - Head circumference abnormal [Unknown]
